FAERS Safety Report 24541442 (Version 1)
Quarter: 2024Q4

REPORT INFORMATION
  Report Type: Spontaneous
  Country: US (occurrence: US)
  Receive Date: 20241023
  Receipt Date: 20241023
  Transmission Date: 20250115
  Serious: No
  Sender: MERCK
  Company Number: US-009507513-2410USA010066

PATIENT
  Sex: Male

DRUGS (3)
  1. JANUVIA [Suspect]
     Active Substance: SITAGLIPTIN PHOSPHATE
     Indication: Type 2 diabetes mellitus
     Dosage: 50MG/ONCE DAILY
     Route: 048
  2. INSULIN NOS [Concomitant]
     Active Substance: INSULIN NOS
  3. SUCRALFATE [Concomitant]
     Active Substance: SUCRALFATE
     Dosage: UNK

REACTIONS (1)
  - Pain [Recovered/Resolved]
